FAERS Safety Report 16891159 (Version 1)
Quarter: 2019Q4

REPORT INFORMATION
  Report Type: Spontaneous
  Country: US (occurrence: US)
  Receive Date: 20191007
  Receipt Date: 20191007
  Transmission Date: 20200122
  Serious: No
  Sender: FDA-Public Use
  Company Number: US-SA-2019SA274056

PATIENT
  Age: 88 Year
  Sex: Female

DRUGS (1)
  1. AMBIEN [Suspect]
     Active Substance: ZOLPIDEM TARTRATE
     Indication: INSOMNIA
     Dosage: A FEW YEARS
     Route: 065

REACTIONS (3)
  - Aggression [Unknown]
  - Depressed mood [Unknown]
  - Depressive symptom [Unknown]
